FAERS Safety Report 8774592 (Version 2)
Quarter: 2012Q4

REPORT INFORMATION
  Report Type: 
  Country: JP (occurrence: JP)
  Receive Date: 20120907
  Receipt Date: 20120919
  Transmission Date: 20130627
  Serious: No
  Sender: FDA-Public Use
  Company Number: JP-NAPPMUNDI-MAG-2012-0002277

PATIENT
  Age: 49 Year
  Sex: Female

DRUGS (5)
  1. OXYCODONE HCL PR TABLET 20 MG [Suspect]
     Indication: CANCER PAIN
     Dosage: 20 mg, daily
     Route: 048
     Dates: start: 20120817
  2. PROCHLORPERAZINE MALEATE [Suspect]
     Indication: PROPHYLAXIS OF NAUSEA AND VOMITING
     Dosage: 15 mg, daily
     Route: 048
     Dates: start: 20120817, end: 20120819
  3. PREDNISOLONE [Suspect]
  4. OPSO [Concomitant]
  5. LORFENAMIN [Concomitant]

REACTIONS (1)
  - Akathisia [Recovered/Resolved]
